FAERS Safety Report 25773340 (Version 1)
Quarter: 2025Q3

REPORT INFORMATION
  Report Type: Spontaneous
  Country: US (occurrence: US)
  Receive Date: 20250908
  Receipt Date: 20250908
  Transmission Date: 20251021
  Serious: Yes (Disabling, Other)
  Sender: REGENERON
  Company Number: US-REGENERON PHARMACEUTICALS, INC.-2025-141588

PATIENT
  Sex: Female

DRUGS (4)
  1. EYLEA [Suspect]
     Active Substance: AFLIBERCEPT
     Indication: Neovascular age-related macular degeneration
  2. EYLEA [Suspect]
     Active Substance: AFLIBERCEPT
     Indication: Neovascular age-related macular degeneration
     Dosage: 2MG, INTO RIGHT EYE; EVERY MONTH, FORMULATION: UNKNOWN
  3. EYLEA [Suspect]
     Active Substance: AFLIBERCEPT
  4. EYLEA [Suspect]
     Active Substance: AFLIBERCEPT

REACTIONS (8)
  - Blindness unilateral [Unknown]
  - Haematological malignancy [Unknown]
  - Neovascular age-related macular degeneration [Unknown]
  - Retinal scar [Unknown]
  - Visual impairment [Unknown]
  - Coagulopathy [Unknown]
  - Impaired driving ability [Unknown]
  - Drug effect less than expected [Unknown]

NARRATIVE: CASE EVENT DATE: 20250101
